FAERS Safety Report 18832496 (Version 6)
Quarter: 2023Q2

REPORT INFORMATION
  Report Type: Other
  Country: CO (occurrence: CO)
  Receive Date: 20210203
  Receipt Date: 20230420
  Transmission Date: 20230721
  Serious: No
  Sender: FDA-Public Use
  Company Number: CO-TOLMAR, INC.-21CO025100

PATIENT
  Age: 84 Year
  Sex: Male

DRUGS (2)
  1. ELIGARD [Suspect]
     Active Substance: LEUPROLIDE ACETATE
     Indication: Prostate cancer
     Dosage: 45 MG
     Route: 058
     Dates: start: 20201120
  2. ELIGARD [Suspect]
     Active Substance: LEUPROLIDE ACETATE
     Dosage: 45 MG
     Route: 058
     Dates: start: 20150401

REACTIONS (4)
  - Injection site hypersensitivity [Recovered/Resolved]
  - Drug administered in wrong device [Unknown]
  - Influenza [Recovered/Resolved]
  - Gastritis [Unknown]

NARRATIVE: CASE EVENT DATE: 20201120
